FAERS Safety Report 8212185 (Version 3)
Quarter: 2012Q4

REPORT INFORMATION
  Report Type: Spontaneous
  Country: US (occurrence: None)
  Receive Date: 20111020
  Receipt Date: 20121015
  Transmission Date: 20130627
  Serious: Yes (Hospitalization, Disabling, Other)
  Sender: FDA-Public Use
  Company Number: 2011MA014744

PATIENT
  Age: 52 Year
  Sex: Male
  Weight: 158.76 kg

DRUGS (29)
  1. METOCLOPRAMIDE [Suspect]
     Indication: GASTROOESOPHAGEAL REFLUX DISEASE
     Route: 048
     Dates: start: 20090318, end: 20091107
  2. METOCLOPRAMIDE [Suspect]
     Indication: DIVERTICULOSIS
     Route: 048
     Dates: start: 20090318, end: 20091107
  3. LANTUS [Concomitant]
  4. NOVOLOG [Concomitant]
  5. JANUVIA [Concomitant]
  6. BUPROPION HYDROCHLORIDE [Concomitant]
  7. PAXIL [Concomitant]
  8. NEXIUM [Concomitant]
  9. AMITIZA [Concomitant]
  10. ABILIFY [Concomitant]
  11. CYMBALTA [Concomitant]
  12. CIPROFLOXACIN HYDROCHLORIDE [Concomitant]
  13. AVELOX [Concomitant]
  14. ZOLOFT [Concomitant]
  15. PREDNISONE [Concomitant]
  16. ACETAMINOPHEN WITH CODEINE [Concomitant]
  17. ALLOPURINOL [Concomitant]
  18. CAPTOPRIL [Concomitant]
  19. COLCHICINE [Concomitant]
  20. COZAAR [Concomitant]
  21. FLOMAX [Concomitant]
  22. FUROSEMIDE [Concomitant]
  23. GABAPENTIN [Concomitant]
  24. HUMILIN INSULIN [Concomitant]
  25. LOVASTATIN [Concomitant]
  26. METFORMIN [Concomitant]
  27. POLYETHYLENE GLYCOL [Concomitant]
  28. SKELAXIN [Concomitant]
  29. ZELNORM [Concomitant]

REACTIONS (21)
  - Blindness [None]
  - Hyphaema [None]
  - Gastrooesophageal reflux disease [None]
  - Irritable bowel syndrome [None]
  - Diabetic gastroparesis [None]
  - Diverticulum [None]
  - Akathisia [None]
  - Depression [None]
  - Hypersomnia [None]
  - Decreased interest [None]
  - Dyspnoea [None]
  - Chest pain [None]
  - Gout [None]
  - Renal disorder [None]
  - Vascular occlusion [None]
  - Hypertension [None]
  - Diabetic complication [None]
  - Balance disorder [None]
  - Tardive dyskinesia [None]
  - Economic problem [None]
  - Emotional disorder [None]
